FAERS Safety Report 15453211 (Version 1)
Quarter: 2018Q4

REPORT INFORMATION
  Report Type: Spontaneous
  Country: AT (occurrence: AT)
  Receive Date: 20181001
  Receipt Date: 20181001
  Transmission Date: 20190204
  Serious: Yes (Hospitalization, Other)
  Sender: FDA-Public Use
  Company Number: AT-SA-2018SA265083

PATIENT
  Age: 36 Year
  Sex: Female

DRUGS (3)
  1. RHINISAN [Suspect]
     Active Substance: TRIAMCINOLONE ACETONIDE
     Indication: PRODUCT USED FOR UNKNOWN INDICATION
     Dosage: SPRAYS ONCE INTO EACH NOSTRIL ONCE A DAY
     Dates: start: 201805
  2. LAMUNA [Concomitant]
     Active Substance: DESOGESTREL\ETHINYL ESTRADIOL
     Dosage: UNK
  3. L-THYROX [Concomitant]
     Active Substance: LEVOTHYROXINE SODIUM
     Dosage: 88 UG, UNK

REACTIONS (2)
  - Loss of consciousness [Recovered/Resolved]
  - Abnormal behaviour [Unknown]

NARRATIVE: CASE EVENT DATE: 20180623
